FAERS Safety Report 11157422 (Version 1)
Quarter: 2015Q2

REPORT INFORMATION
  Report Type: Report from Study
  Country: AT (occurrence: AT)
  Receive Date: 20150603
  Receipt Date: 20150603
  Transmission Date: 20150821
  Serious: Yes (Death)
  Sender: FDA-Public Use
  Company Number: AT-ROCHE-1586675

PATIENT
  Age: 66 Year
  Sex: Female

DRUGS (1)
  1. BEVACIZUMAB [Suspect]
     Active Substance: BEVACIZUMAB
     Indication: EPISTAXIS
     Dosage: 5 MG/KG (250 MG ABSOLUTE) FOR SIX TIMES EVERY 2 WEEKS.
     Route: 065

REACTIONS (1)
  - Brain abscess [Fatal]
